FAERS Safety Report 5400746-2 (Version None)
Quarter: 2007Q3

REPORT INFORMATION
  Report Type: 
  Country: None (occurrence: None)
  Receive Date: 20070730
  Receipt Date: 20070717
  Transmission Date: 20080115
  Serious: Yes (Hospitalization)
  Sender: FDA-Public Use
  Company Number: CN-ASTRAZENECA-2007AP04338

PATIENT
  Age: 25 Year
  Sex: Female

DRUGS (1)
  1. NAROPIN [Suspect]
     Indication: SPINAL ANAESTHESIA
     Route: 037
     Dates: start: 20070401, end: 20070401

REACTIONS (2)
  - BACK PAIN [None]
  - PAIN IN EXTREMITY [None]
